FAERS Safety Report 17804499 (Version 3)
Quarter: 2021Q4

REPORT INFORMATION
  Report Type: Report from Study
  Country: US (occurrence: None)
  Receive Date: 20200519
  Receipt Date: 20211105
  Transmission Date: 20220303
  Serious: Yes (Hospitalization)
  Sender: FDA-Public Use
  Company Number: US-EISAI MEDICAL RESEARCH-EC-2020-068697

PATIENT
  Age: 63 Year
  Sex: Female
  Weight: 79.5 kg

DRUGS (18)
  1. LENVIMA [Suspect]
     Active Substance: LENVATINIB
     Indication: Endometrial cancer
     Route: 048
     Dates: start: 20200108, end: 20200514
  2. LENVIMA [Suspect]
     Active Substance: LENVATINIB
     Route: 048
     Dates: start: 2020, end: 2020
  3. LENVIMA [Suspect]
     Active Substance: LENVATINIB
     Dosage: 10MG SOME DAYS 20MG
     Route: 048
     Dates: start: 2020, end: 2021
  4. ALEVE [Concomitant]
     Active Substance: NAPROXEN SODIUM
  5. ZYRTEC [Concomitant]
     Active Substance: CETIRIZINE HYDROCHLORIDE
  6. SERTRALINE [Concomitant]
     Active Substance: SERTRALINE HYDROCHLORIDE
  7. ELIQUIS [Concomitant]
     Active Substance: APIXABAN
  8. ENOXAPARIN [Concomitant]
     Active Substance: ENOXAPARIN
  9. LOSARTAN [Concomitant]
     Active Substance: LOSARTAN
  10. CHLORTHALIDONE [Concomitant]
     Active Substance: CHLORTHALIDONE
  11. AMOXICILLIN [Concomitant]
     Active Substance: AMOXICILLIN
  12. AZELASTINE [Concomitant]
     Active Substance: AZELASTINE
  13. LEVOTHYROXINE [Concomitant]
     Active Substance: LEVOTHYROXINE
  14. ONDANSETRON [Concomitant]
     Active Substance: ONDANSETRON
  15. POTASSIUM [Concomitant]
     Active Substance: POTASSIUM
  16. COLACE [Concomitant]
     Active Substance: DOCUSATE SODIUM
  17. KEYTRUDA [Concomitant]
     Active Substance: PEMBROLIZUMAB
  18. SLEEP AID [Concomitant]

REACTIONS (10)
  - Hypertension [Unknown]
  - Dehydration [Unknown]
  - Diarrhoea [Unknown]
  - Actinic keratosis [Unknown]
  - Hyperkeratosis [Unknown]
  - Nausea [Recovering/Resolving]
  - Vomiting [Recovering/Resolving]
  - Skin ulcer [Unknown]
  - Tooth disorder [Unknown]
  - Gingival bleeding [Unknown]

NARRATIVE: CASE EVENT DATE: 20200101
